FAERS Safety Report 4627052-8 (Version None)
Quarter: 2005Q2

REPORT INFORMATION
  Report Type: 
  Country: None (occurrence: None)
  Receive Date: 20050401
  Receipt Date: 20050401
  Transmission Date: 20051028
  Serious: Yes (Other)
  Sender: FDA-Public Use
  Company Number: None

PATIENT
  Age: 33 Year
  Sex: Female

DRUGS (2)
  1. DURAGESIC-75 [Suspect]
     Indication: BACK PAIN
     Dosage: 75MCG ONE EVERY 48-H  (DURATION: INDEFINATE)
  2. DURAGESIC-75 [Suspect]
     Indication: OSTEOARTHRITIS
     Dosage: 75MCG ONE EVERY 48-H  (DURATION: INDEFINATE)

REACTIONS (2)
  - PHARMACEUTICAL PRODUCT COMPLAINT [None]
  - URTICARIA [None]
